FAERS Safety Report 20644166 (Version 1)
Quarter: 2022Q1

REPORT INFORMATION
  Report Type: Spontaneous
  Country: US (occurrence: None)
  Receive Date: 20220326
  Receipt Date: 20220326
  Transmission Date: 20220423
  Serious: Yes (Death)
  Sender: FDA-Public Use
  Company Number: None

PATIENT
  Age: 87 Year
  Sex: Male
  Weight: 73.94 kg

DRUGS (11)
  1. ABIRATERONE [Suspect]
     Active Substance: ABIRATERONE
     Dosage: FREQUENCY : TWICE A DAY;?
     Route: 048
     Dates: start: 20220301
  2. ATORVASTATIN CALCIUM [Suspect]
     Active Substance: ATORVASTATIN CALCIUM
  3. CALCIUM [Suspect]
     Active Substance: CALCIUM
  4. COMBIGAN [Suspect]
     Active Substance: BRIMONIDINE TARTRATE\TIMOLOL MALEATE
  5. DORZOLAMIDE HYDROCHLORIDE [Suspect]
     Active Substance: DORZOLAMIDE HYDROCHLORIDE
  6. FISH OIL [Suspect]
     Active Substance: FISH OIL
  7. LATANOPROST [Suspect]
     Active Substance: LATANOPROST
  8. LUPRON DEPOT [Suspect]
     Active Substance: LEUPROLIDE ACETATE
  9. VITAMIN B12 [Suspect]
     Active Substance: CYANOCOBALAMIN
  10. VITAMIN C [Suspect]
     Active Substance: ASCORBIC ACID
  11. VITAMIN D3 [Suspect]
     Active Substance: CHOLECALCIFEROL

REACTIONS (1)
  - Death [None]

NARRATIVE: CASE EVENT DATE: 20220312
